FAERS Safety Report 6958145-8 (Version None)
Quarter: 2010Q3

REPORT INFORMATION
  Report Type: 
  Country: None (occurrence: None)
  Receive Date: 20100827
  Receipt Date: 20100827
  Transmission Date: 20110219
  Serious: Yes (Other)
  Sender: FDA-Public Use
  Company Number: None

PATIENT
  Sex: Male
  Weight: 61.2356 kg

DRUGS (1)
  1. PROPECIA [Suspect]
     Indication: ALOPECIA
     Dosage: 1 TABLETS/DAY DAILY ORAL
     Route: 048
     Dates: start: 20100727, end: 20100803

REACTIONS (6)
  - DYSURIA [None]
  - LIP SWELLING [None]
  - MICTURITION DISORDER [None]
  - PRURITUS [None]
  - SKIN EXFOLIATION [None]
  - SWELLING FACE [None]
